FAERS Safety Report 6185006-7 (Version None)
Quarter: 2009Q2

REPORT INFORMATION
  Report Type: 
  Country: None (occurrence: None)
  Receive Date: 20090511
  Receipt Date: 20090320
  Transmission Date: 20091009
  Serious: No
  Sender: FDA-Public Use
  Company Number: A0774583A

PATIENT
  Age: 60 Year
  Sex: Female

DRUGS (6)
  1. COREG CR [Suspect]
     Indication: DRUG USE FOR UNKNOWN INDICATION
     Dosage: 40CAP PER DAY
     Route: 048
     Dates: start: 20090226, end: 20090311
  2. ACCUPRIL [Concomitant]
  3. METFORMIN HCL [Concomitant]
  4. PLAVIX [Concomitant]
  5. CRESTOR [Concomitant]
  6. NITROGLYCERIN [Concomitant]

REACTIONS (2)
  - FATIGUE [None]
  - PALPITATIONS [None]
